FAERS Safety Report 7423037-7 (Version None)
Quarter: 2011Q2

REPORT INFORMATION
  Report Type: 
  Country: None (occurrence: None)
  Receive Date: 20110419
  Receipt Date: 20110413
  Transmission Date: 20111010
  Serious: Yes (Death)
  Sender: FDA-Public Use
  Company Number: US-AMGEN-USASP2011018553

PATIENT
  Age: 84 Year
  Sex: Male

DRUGS (2)
  1. NPLATE [Suspect]
     Indication: IDIOPATHIC THROMBOCYTOPENIC PURPURA
     Dosage: 345 A?G, QWK
     Dates: start: 20110301, end: 20110406
  2. NPLATE [Suspect]
     Dates: start: 20110301

REACTIONS (1)
  - DEATH [None]
